FAERS Safety Report 5258092-6 (Version None)
Quarter: 2007Q1

REPORT INFORMATION
  Report Type: 
  Country: None (occurrence: None)
  Receive Date: 20070307
  Receipt Date: 20070223
  Transmission Date: 20070707
  Serious: Yes (Other)
  Sender: FDA-Public Use
  Company Number: US-SHR-US-2006-035371

PATIENT
  Age: 71 Year
  Sex: Female
  Weight: 55.782 kg

DRUGS (2)
  1. BETASERON [Suspect]
     Indication: RELAPSING-REMITTING MULTIPLE SCLEROSIS
     Dosage: 8 MIU, EVERY 2D
     Route: 058
     Dates: start: 19971114
  2. AMANTADINE HCL [Concomitant]
     Dates: start: 20061101

REACTIONS (1)
  - CORNEAL DYSTROPHY [None]
